FAERS Safety Report 4768455-0 (Version None)
Quarter: 2005Q3

REPORT INFORMATION
  Report Type: 
  Country: None (occurrence: None)
  Receive Date: 20050914
  Receipt Date: 20050830
  Transmission Date: 20060218
  Serious: Yes (Hospitalization)
  Sender: FDA-Public Use
  Company Number: CA-AMGEN-US148503

PATIENT
  Sex: Female

DRUGS (4)
  1. ENBREL [Suspect]
     Indication: JUVENILE ARTHRITIS
     Route: 058
     Dates: start: 20030101, end: 20050814
  2. VENTOLIN [Concomitant]
  3. ORUDIS [Concomitant]
  4. ESTRADERM [Concomitant]

REACTIONS (6)
  - HEADACHE [None]
  - LYMPHADENOPATHY [None]
  - PYREXIA [None]
  - RASH MACULO-PAPULAR [None]
  - SERUM SICKNESS [None]
  - VASCULITIS [None]
